FAERS Safety Report 5285448-8 (Version None)
Quarter: 2007Q2

REPORT INFORMATION
  Report Type: 
  Country: None (occurrence: None)
  Receive Date: 20070403
  Receipt Date: 20070327
  Transmission Date: 20071010
  Serious: Yes (Death)
  Sender: FDA-Public Use
  Company Number: MX-GILEAD-2007-0011778

PATIENT
  Sex: Male

DRUGS (4)
  1. VIREAD [Suspect]
     Indication: HIV INFECTION
     Route: 048
     Dates: start: 20070305, end: 20070310
  2. EMTRIVA [Suspect]
     Indication: HIV INFECTION
     Route: 048
     Dates: start: 20070305, end: 20070310
  3. EFAVIRENZ [Concomitant]
     Indication: HIV INFECTION
     Route: 048
     Dates: start: 20070305, end: 20070310
  4. FLUCONAZOLE [Concomitant]
     Route: 048
     Dates: start: 20070305

REACTIONS (2)
  - MULTI-ORGAN FAILURE [None]
  - OPPORTUNISTIC INFECTION [None]
